FAERS Safety Report 20700918 (Version 1)
Quarter: 2022Q2

REPORT INFORMATION
  Report Type: Spontaneous
  Country: US (occurrence: US)
  Receive Date: 20220412
  Receipt Date: 20220412
  Transmission Date: 20220721
  Serious: Yes (Hospitalization, Other)
  Sender: FDA-Public Use
  Company Number: US-ASTELLAS-2022US008233

PATIENT
  Sex: Male

DRUGS (3)
  1. TACROLIMUS [Suspect]
     Active Substance: TACROLIMUS
     Indication: Product used for unknown indication
     Dosage: UNK UNK, UNKNOWN FREQ.
     Route: 065
  2. JAKAFI [Suspect]
     Active Substance: RUXOLITINIB
     Indication: Graft versus host disease
     Route: 048
     Dates: start: 202112
  3. JAKAFI [Suspect]
     Active Substance: RUXOLITINIB
     Indication: Haemochromatosis
     Route: 048
     Dates: start: 20211216, end: 20211217

REACTIONS (4)
  - Hypertension [Unknown]
  - Posterior reversible encephalopathy syndrome [Unknown]
  - Hyperglycaemia [Unknown]
  - Thrombocytopenia [Unknown]
